FAERS Safety Report 13229440 (Version 1)
Quarter: 2017Q1

REPORT INFORMATION
  Report Type: Spontaneous
  Country: RO (occurrence: RO)
  Receive Date: 20170214
  Receipt Date: 20170214
  Transmission Date: 20170428
  Serious: Yes (Other)
  Sender: FDA-Public Use
  Company Number: RO-ACCORD-048036

PATIENT
  Age: 52 Year
  Sex: Female

DRUGS (4)
  1. FLUOROURACIL. [Suspect]
     Active Substance: FLUOROURACIL
     Indication: RECTAL ADENOCARCINOMA
  2. OXALIPLATIN. [Suspect]
     Active Substance: OXALIPLATIN
     Indication: RECTAL ADENOCARCINOMA
     Dosage: OXALIPLATIN 130 MG/M2 D1
  3. BEVACIZUMAB [Suspect]
     Active Substance: BEVACIZUMAB
     Indication: RECTAL ADENOCARCINOMA
     Dosage: 7.5 MG/KG, D1Q3
  4. CAPECITABINE. [Suspect]
     Active Substance: CAPECITABINE
     Indication: RECTAL ADENOCARCINOMA
     Dosage: CAPECITABINE 1000 MG/M2, PO, TWICE DAILY, FOR 14 DAYS, REPEATED EVERY 3 WEEKS
     Route: 048

REACTIONS (15)
  - Vomiting [Unknown]
  - Muscular weakness [Unknown]
  - Hypocalcaemia [Unknown]
  - Haematotoxicity [Unknown]
  - Urinary tract infection [Unknown]
  - Diarrhoea [Unknown]
  - Hypoaesthesia [Unknown]
  - Hypokalaemia [Unknown]
  - Nausea [Unknown]
  - Asthenia [Unknown]
  - Blood creatinine increased [Unknown]
  - Hypersensitivity [Unknown]
  - Dysuria [Unknown]
  - Hyponatraemia [Unknown]
  - Proteinuria [Unknown]
